FAERS Safety Report 8250486-X (Version None)
Quarter: 2012Q2

REPORT INFORMATION
  Report Type: 
  Country: None (occurrence: None)
  Receive Date: 20120402
  Receipt Date: 20120402
  Transmission Date: 20120825
  Serious: Yes (Other)
  Sender: FDA-Public Use
  Company Number: None

PATIENT
  Age: 71 Year
  Sex: Female
  Weight: 90 kg

DRUGS (1)
  1. VANCOMYCIN [Suspect]
     Indication: STAPHYLOCOCCAL BACTERAEMIA
     Dosage: 1000MG
     Route: 042

REACTIONS (2)
  - LINEAR IGA DISEASE [None]
  - DIALYSIS [None]
